FAERS Safety Report 7176564-4 (Version None)
Quarter: 2010Q4

REPORT INFORMATION
  Report Type: 
  Country: None (occurrence: None)
  Receive Date: 20101220
  Receipt Date: 20101206
  Transmission Date: 20110411
  Serious: Yes (Hospitalization)
  Sender: FDA-Public Use
  Company Number: PHHO2010GB13748

PATIENT
  Sex: Female

DRUGS (1)
  1. DICLOFENAC SODIUM [Suspect]
     Dosage: 25 MG THREE TIME(S) EVERY 1 DAY
     Route: 048
     Dates: start: 20100208

REACTIONS (3)
  - DYSPNOEA [None]
  - LIVER DISORDER [None]
  - PULMONARY EMBOLISM [None]
